FAERS Safety Report 5380621-2 (Version None)
Quarter: 2007Q2

REPORT INFORMATION
  Report Type: 
  Country: None (occurrence: None)
  Receive Date: 20070530
  Receipt Date: 20070302
  Transmission Date: 20071010
  Serious: No
  Sender: FDA-Public Use
  Company Number: 2007PV030926

PATIENT
  Age: 66 Year
  Sex: Female

DRUGS (3)
  1. BYETTA [Suspect]
     Indication: DIABETES MELLITUS NON-INSULIN-DEPENDENT
     Dosage: 5 MCG; BID; SC
     Route: 058
     Dates: start: 20070301
  2. GLIPIZIDE [Concomitant]
  3. AVANDIA [Concomitant]

REACTIONS (3)
  - ASTHMA [None]
  - NASAL CONGESTION [None]
  - SINUS CONGESTION [None]
